FAERS Safety Report 25822987 (Version 1)
Quarter: 2025Q3

REPORT INFORMATION
  Report Type: Spontaneous
  Country: GB (occurrence: GB)
  Receive Date: 20250919
  Receipt Date: 20250919
  Transmission Date: 20251021
  Serious: Yes (Hospitalization)
  Sender: HIKMA
  Company Number: GB-ROCHE-10000375411

PATIENT
  Age: 70 Year
  Sex: Female
  Weight: 52 kg

DRUGS (7)
  1. CYCLOPHOSPHAMIDE [Suspect]
     Active Substance: CYCLOPHOSPHAMIDE
     Indication: Follicular lymphoma
     Dosage: 1260 MILLIGRAM, 3W
     Route: 042
     Dates: start: 20250721
  2. DOXORUBICIN [Suspect]
     Active Substance: DOXORUBICIN
     Indication: Follicular lymphoma
     Dosage: 80 MILLIGRAM, 3W
     Route: 042
     Dates: start: 20250721
  3. OBINUTUZUMAB [Suspect]
     Active Substance: OBINUTUZUMAB
     Indication: Follicular lymphoma
     Dosage: 1000 MILLIGRAM, 3W
     Route: 042
     Dates: start: 20250721
  4. PREDNISONE [Suspect]
     Active Substance: PREDNISONE
     Indication: Follicular lymphoma
     Dosage: 100 MILLIGRAM, QD
     Route: 048
     Dates: start: 20250721
  5. VINCRISTINE [Suspect]
     Active Substance: VINCRISTINE
     Indication: Follicular lymphoma
     Dosage: 2 MILLIGRAM, 3W
     Route: 042
     Dates: start: 20250721
  6. BISOPROLOL [Concomitant]
     Active Substance: BISOPROLOL
     Indication: Product used for unknown indication
     Dosage: 2.5 MILLIGRAM, QD
     Route: 065
     Dates: start: 2025
  7. CALCI D [Concomitant]
     Indication: Osteoporosis
     Dosage: 1 DOSAGE FORM, QD
     Route: 065
     Dates: start: 2025

REACTIONS (6)
  - Body temperature decreased [Unknown]
  - Diarrhoea [Not Recovered/Not Resolved]
  - Abdominal pain [Unknown]
  - Constipation [Unknown]
  - Pollakiuria [Unknown]
  - Asthenia [Unknown]

NARRATIVE: CASE EVENT DATE: 20250820
